FAERS Safety Report 20431786 (Version 3)
Quarter: 2022Q1

REPORT INFORMATION
  Report Type: Spontaneous
  Country: DE (occurrence: DE)
  Receive Date: 20220204
  Receipt Date: 20220329
  Transmission Date: 20220424
  Serious: Yes (Disabling, Other)
  Sender: FDA-Public Use
  Company Number: DE-BoehringerIngelheim-2022-BI-152059

PATIENT
  Age: 79 Year
  Sex: Male
  Weight: 70 kg

DRUGS (5)
  1. JARDIANCE [Suspect]
     Active Substance: EMPAGLIFLOZIN
     Indication: Product used for unknown indication
     Route: 048
     Dates: start: 20220115
  2. PRADAXA [Suspect]
     Active Substance: DABIGATRAN ETEXILATE MESYLATE
     Indication: Cerebrovascular accident prophylaxis
     Route: 048
     Dates: start: 20180416, end: 20220114
  3. PRADAXA [Suspect]
     Active Substance: DABIGATRAN ETEXILATE MESYLATE
     Indication: Atrial fibrillation
     Route: 048
     Dates: start: 20220115
  4. Candesartan 1 A Pharma 16 mg [Concomitant]
     Indication: Product used for unknown indication
     Route: 048
     Dates: start: 20220115
  5. Atorvastatin 1 A Pharma 20 mg [Concomitant]
     Indication: Product used for unknown indication
     Route: 048
     Dates: start: 20180416

REACTIONS (1)
  - Macular degeneration [Recovered/Resolved with Sequelae]

NARRATIVE: CASE EVENT DATE: 20220118
